FAERS Safety Report 6376948-8 (Version None)
Quarter: 2009Q3

REPORT INFORMATION
  Report Type: 
  Country: None (occurrence: None)
  Receive Date: 20090925
  Receipt Date: 20090914
  Transmission Date: 20100115
  Serious: Yes (Hospitalization)
  Sender: FDA-Public Use
  Company Number: DE-PFIZER INC-2009265904

PATIENT
  Age: 47 Year

DRUGS (3)
  1. CYCLOPHOSPHAMIDE [Suspect]
     Indication: BREAST CANCER
     Dosage: 600 MG, CYCLIC
     Route: 042
     Dates: start: 20090504, end: 20090706
  2. DOXORUBICIN HCL [Suspect]
     Indication: BREAST CANCER
     Dosage: 60 MG, CYCLIC
     Route: 042
     Dates: start: 20090504, end: 20090706
  3. IXABEPILONE [Suspect]
     Indication: BREAST CANCER
     Dosage: 40 MG, EVERY 3 WEEKS
     Route: 042
     Dates: start: 20090727

REACTIONS (1)
  - ATRIAL FIBRILLATION [None]
